FAERS Safety Report 8729961 (Version 2)
Quarter: 2015Q2

REPORT INFORMATION
  Report Type: Report from Study
  Country: US (occurrence: US)
  Receive Date: 20120817
  Receipt Date: 20150626
  Transmission Date: 20150821
  Serious: Yes (Hospitalization)
  Sender: FDA-Public Use
  Company Number: US-ROCHE-1101598

PATIENT
  Age: 60 Year
  Sex: Male

DRUGS (9)
  1. HEPARIN [Concomitant]
     Active Substance: HEPARIN SODIUM
     Route: 065
  2. TRIDIL [Concomitant]
     Active Substance: NITROGLYCERIN
     Dosage: 5 MCG/MIN
     Route: 065
  3. TRIDIL [Concomitant]
     Active Substance: NITROGLYCERIN
     Dosage: 5 MCG/MIN
     Route: 065
  4. HEPARIN [Concomitant]
     Active Substance: HEPARIN SODIUM
     Route: 042
  5. NITROGLYCERIN. [Concomitant]
     Active Substance: NITROGLYCERIN
     Route: 065
  6. NICODERM CQ [Concomitant]
     Active Substance: NICOTINE
     Route: 065
  7. ACTIVASE [Suspect]
     Active Substance: ALTEPLASE
     Indication: ACUTE MYOCARDIAL INFARCTION
     Route: 065
     Dates: start: 19950226
  8. ASCRIPTIN (UNITED STATES) [Concomitant]
     Route: 065
  9. ACTIVASE [Suspect]
     Active Substance: ALTEPLASE
     Route: 040

REACTIONS (4)
  - Nausea [Unknown]
  - Chest pain [Unknown]
  - Sinus arrhythmia [Unknown]
  - No therapeutic response [Unknown]

NARRATIVE: CASE EVENT DATE: 19950226
